FAERS Safety Report 6954073-2 (Version None)
Quarter: 2010Q3

REPORT INFORMATION
  Report Type: 
  Country: None (occurrence: None)
  Receive Date: 20100829
  Receipt Date: 20100701
  Transmission Date: 20110219
  Serious: No
  Sender: FDA-Public Use
  Company Number: US-ABBOTT-10P-163-0655516-00

PATIENT
  Sex: Male
  Weight: 54.48 kg

DRUGS (18)
  1. NIASPAN [Suspect]
     Indication: BLOOD CHOLESTEROL INCREASED
     Dates: start: 20090101
  2. NIFEDIPINE [Concomitant]
     Indication: HYPERTENSION
  3. MICARDIS [Concomitant]
     Indication: HYPERTENSION
  4. LIPITOR [Concomitant]
     Indication: BLOOD CHOLESTEROL INCREASED
  5. PRILOSEC [Concomitant]
     Indication: GASTRIC DISORDER
  6. PRILOSEC [Concomitant]
     Indication: PROPHYLAXIS
  7. AZULFADINE [Concomitant]
     Indication: RHEUMATOID ARTHRITIS
  8. MOBIC [Concomitant]
     Indication: RHEUMATOID ARTHRITIS
  9. RECLAST [Concomitant]
     Indication: OSTEOPOROSIS
  10. DARVOCET [Concomitant]
     Indication: PAIN
  11. VICODIN [Concomitant]
     Indication: PAIN
  12. CIALIS [Concomitant]
     Indication: ERECTILE DYSFUNCTION
  13. TIMOLOL [Concomitant]
     Indication: GLAUCOMA
  14. AMOXICILLIN [Concomitant]
     Indication: TOOTH DISORDER
  15. AMOXICILLIN [Concomitant]
     Indication: PROPHYLAXIS
  16. CLARITIN-D [Concomitant]
     Indication: HYPERSENSITIVITY
  17. FLUOCINONIDE [Concomitant]
     Indication: PSORIASIS
  18. CIPRO [Concomitant]
     Indication: PROSTATE CANCER

REACTIONS (3)
  - FLUSHING [None]
  - HYPOAESTHESIA [None]
  - PRURITUS [None]
